FAERS Safety Report 9547555 (Version 1)
Quarter: 2013Q3

REPORT INFORMATION
  Report Type: Spontaneous
  Country: US (occurrence: None)
  Receive Date: 20130923
  Receipt Date: 20130923
  Transmission Date: 20140515
  Serious: No
  Sender: FDA-Public Use
  Company Number: None

PATIENT
  Age: 72 Year
  Sex: Female

DRUGS (1)
  1. ARIMIDEX [Suspect]
     Indication: BREAST CANCER
     Dosage: ANMIDEX 1MG, 1POQDY, PO
     Route: 048
     Dates: start: 20130807, end: 20130814

REACTIONS (3)
  - Fatigue [None]
  - Asthenia [None]
  - Myalgia [None]
